FAERS Safety Report 18799306 (Version 3)
Quarter: 2022Q3

REPORT INFORMATION
  Report Type: Report from Study
  Country: CA (occurrence: CA)
  Receive Date: 20210128
  Receipt Date: 20220711
  Transmission Date: 20221026
  Serious: Yes (Other)
  Sender: FDA-Public Use
  Company Number: CA-GLAXOSMITHKLINE-CA2020AMR259271

PATIENT

DRUGS (2)
  1. MEPOLIZUMAB [Suspect]
     Active Substance: MEPOLIZUMAB
     Indication: Asthma
     Dosage: 100 MG, Z, 1 MONTHLY
     Route: 042
     Dates: start: 20180703
  2. ZOLADEX [Suspect]
     Active Substance: GOSERELIN ACETATE
     Indication: Product used for unknown indication
     Dosage: UNK

REACTIONS (6)
  - Prostate cancer metastatic [Unknown]
  - Neoplasm malignant [Unknown]
  - Condition aggravated [Unknown]
  - Gait inability [Unknown]
  - Back pain [Unknown]
  - Pain in extremity [Unknown]
